FAERS Safety Report 24021780 (Version 1)
Quarter: 2024Q2

REPORT INFORMATION
  Report Type: Report from Study
  Country: US (occurrence: US)
  Receive Date: 20240627
  Receipt Date: 20240627
  Transmission Date: 20240716
  Serious: Yes (Other)
  Sender: FDA-Public Use
  Company Number: US-JNJFOC-20230332213

PATIENT
  Age: 77 Year
  Sex: Female

DRUGS (2)
  1. REMICADE [Suspect]
     Active Substance: INFLIXIMAB
     Indication: Psoriasis
     Route: 058
     Dates: start: 20081023, end: 20081023
  2. REMICADE [Suspect]
     Active Substance: INFLIXIMAB
     Route: 058
     Dates: start: 20090227, end: 20090901

REACTIONS (3)
  - Basal cell carcinoma [Unknown]
  - Bronchiectasis [Unknown]
  - Idiopathic interstitial pneumonia [Unknown]

NARRATIVE: CASE EVENT DATE: 20140911
